FAERS Safety Report 16850781 (Version 1)
Quarter: 2019Q3

REPORT INFORMATION
  Report Type: Spontaneous
  Country: US (occurrence: US)
  Receive Date: 20190925
  Receipt Date: 20190925
  Transmission Date: 20191005
  Serious: No
  Sender: FDA-Public Use
  Company Number: US-THERAPEUTICSMD-2019TMD01241

PATIENT
  Sex: Female
  Weight: 55.33 kg

DRUGS (6)
  1. K2 VITAMIN [Concomitant]
  2. COQ 10 [Concomitant]
     Active Substance: UBIDECARENONE
  3. METOPROLOL. [Concomitant]
     Active Substance: METOPROLOL
     Dosage: 12.5 MG, 1X/DAY
  4. CALCIUM/VITAMIN D3 [Concomitant]
     Dosage: UNK
  5. IMVEXXY [Suspect]
     Active Substance: ESTRADIOL
     Indication: BLADDER DISORDER
     Dosage: 10 ?G, 2X/MONTH USUALLY AT BEDTIME
     Route: 067
     Dates: end: 201904
  6. ESTRADIOL. [Concomitant]
     Active Substance: ESTRADIOL
     Dosage: 0.1 MG, 2X/WEEK
     Route: 067

REACTIONS (4)
  - Off label use [Recovered/Resolved]
  - Headache [Recovered/Resolved]
  - Photopsia [Recovered/Resolved]
  - Migraine [Recovered/Resolved]
